FAERS Safety Report 22542044 (Version 1)
Quarter: 2023Q2

REPORT INFORMATION
  Report Type: Report from Study
  Country: US (occurrence: US)
  Receive Date: 20230609
  Receipt Date: 20230609
  Transmission Date: 20230722
  Serious: Yes (Death, Other)
  Sender: FDA-Public Use
  Company Number: US-REGENERON PHARMACEUTICALS, INC.-2023-075405

PATIENT
  Sex: Female

DRUGS (1)
  1. CEMIPLIMAB [Suspect]
     Active Substance: CEMIPLIMAB
     Indication: Lung carcinoma cell type unspecified stage 0
     Dosage: 350 MG, Q3W
     Route: 042
     Dates: start: 202305

REACTIONS (1)
  - Death [Fatal]

NARRATIVE: CASE EVENT DATE: 20230605
